FAERS Safety Report 13662505 (Version 2)
Quarter: 2017Q3

REPORT INFORMATION
  Report Type: Spontaneous
  Country: GB (occurrence: GB)
  Receive Date: 20170617
  Receipt Date: 20170807
  Transmission Date: 20171127
  Serious: Yes (Hospitalization)
  Sender: FDA-Public Use
  Company Number: GB-AMGEN-GBRSP2017091415

PATIENT
  Age: 50 Year
  Sex: Male
  Weight: 76 kg

DRUGS (2)
  1. METHOTREXATE. [Concomitant]
     Active Substance: METHOTREXATE
     Indication: PSORIATIC ARTHROPATHY
     Dosage: 15 MG, UNK
     Route: 058
     Dates: start: 2013, end: 20170325
  2. ENBREL [Suspect]
     Active Substance: ETANERCEPT
     Indication: PSORIATIC ARTHROPATHY
     Dosage: 25 MG, QWK
     Route: 058
     Dates: start: 201604

REACTIONS (5)
  - Liver abscess [Recovered/Resolved]
  - Pyrexia [Recovered/Resolved]
  - Candida infection [Recovered/Resolved]
  - Back pain [Recovered/Resolved]
  - Streptococcus test positive [Recovered/Resolved]

NARRATIVE: CASE EVENT DATE: 20170325
